FAERS Safety Report 15550118 (Version 2)
Quarter: 2018Q4

REPORT INFORMATION
  Report Type: Spontaneous
  Country: US (occurrence: US)
  Receive Date: 20181025
  Receipt Date: 20181120
  Transmission Date: 20190205
  Serious: Yes (Hospitalization, Other)
  Sender: FDA-Public Use
  Company Number: US-PFIZER INC-2018428862

PATIENT
  Age: 85 Year
  Sex: Male

DRUGS (1)
  1. XELJANZ [Suspect]
     Active Substance: TOFACITINIB CITRATE
     Dosage: 5 MG, UNK
     Dates: start: 20180906, end: 2018

REACTIONS (2)
  - Fatigue [Unknown]
  - Renal failure [Unknown]

NARRATIVE: CASE EVENT DATE: 2018
